FAERS Safety Report 8383377-4 (Version None)
Quarter: 2012Q2

REPORT INFORMATION
  Report Type: 
  Country: None (occurrence: None)
  Receive Date: 20120522
  Receipt Date: 20120511
  Transmission Date: 20120825
  Serious: Yes (Hospitalization)
  Sender: FDA-Public Use
  Company Number: 2012ST000438

PATIENT
  Age: 68 Year
  Sex: Female

DRUGS (2)
  1. MATULANE [Suspect]
     Indication: LYMPHOMA
     Dosage: 200 MG; QD; PO
     Route: 048
     Dates: start: 20120227, end: 20120501
  2. PREDNISOLONE [Suspect]
     Indication: PRODUCT USED FOR UNKNOWN INDICATION

REACTIONS (2)
  - HYPERGLYCAEMIA [None]
  - DEHYDRATION [None]
